FAERS Safety Report 16350986 (Version 1)
Quarter: 2019Q2

REPORT INFORMATION
  Report Type: Spontaneous
  Country: US (occurrence: US)
  Receive Date: 20190524
  Receipt Date: 20190524
  Transmission Date: 20190711
  Serious: No
  Sender: FDA-Public Use
  Company Number: US-009507513-1905USA010795

PATIENT
  Age: 28 Year
  Sex: Female

DRUGS (1)
  1. NEXPLANON [Suspect]
     Active Substance: ETONOGESTREL
     Dosage: 3 YEARS, LEFT ARM
     Dates: start: 20180502

REACTIONS (2)
  - Device breakage [Unknown]
  - Device kink [Unknown]

NARRATIVE: CASE EVENT DATE: 20190522
